FAERS Safety Report 8291820-4 (Version None)
Quarter: 2012Q2

REPORT INFORMATION
  Report Type: 
  Country: None (occurrence: None)
  Receive Date: 20120417
  Receipt Date: 20120410
  Transmission Date: 20120825
  Serious: Yes (Hospitalization, Other)
  Sender: FDA-Public Use
  Company Number: US-ELI_LILLY_AND_COMPANY-US201008006784

PATIENT
  Sex: Female

DRUGS (3)
  1. FORTEO [Suspect]
     Indication: OSTEOPOROSIS
     Dosage: 20 UG, QD
     Dates: start: 20100301
  2. FORTEO [Suspect]
     Dosage: 20 UG, QD
  3. FORTEO [Suspect]
     Dosage: 20 UG, QD

REACTIONS (13)
  - KNEE ARTHROPLASTY [None]
  - MALAISE [None]
  - BONE PAIN [None]
  - INJECTION SITE PAIN [None]
  - ARTHRALGIA [None]
  - FALL [None]
  - RIB FRACTURE [None]
  - VISUAL IMPAIRMENT [None]
  - BACK DISORDER [None]
  - DIZZINESS [None]
  - EYE PAIN [None]
  - HEADACHE [None]
  - INSOMNIA [None]
